FAERS Safety Report 9584856 (Version 1)
Quarter: 2013Q4

REPORT INFORMATION
  Report Type: Spontaneous
  Country: US (occurrence: US)
  Receive Date: 20131002
  Receipt Date: 20131002
  Transmission Date: 20140711
  Serious: No
  Sender: FDA-Public Use
  Company Number: US-AMGEN-USASP2013055847

PATIENT
  Age: 65 Year
  Sex: Female
  Weight: 63.49 kg

DRUGS (7)
  1. ENBREL [Suspect]
     Indication: PRODUCT USED FOR UNKNOWN INDICATION
     Dosage: 50 MG, QWK
     Route: 058
  2. LORAZEPAM [Concomitant]
     Dosage: 1 MG, UNK
  3. ANTIVERT                           /00007101/ [Concomitant]
     Dosage: 12.5 MG, UNK
  4. METHOTREXATE [Concomitant]
     Dosage: 2.5 MG, UNK
  5. FOLIC ACID [Concomitant]
     Dosage: 1 MG, UNK
  6. SYNTHROID [Concomitant]
     Dosage: 88 MUG, UNK
  7. ADVIL                              /00044201/ [Concomitant]
     Dosage: 200 MG, UNK

REACTIONS (1)
  - Drug ineffective [Unknown]
